FAERS Safety Report 17578842 (Version 1)
Quarter: 2020Q1

REPORT INFORMATION
  Report Type: Spontaneous
  Country: MX (occurrence: MX)
  Receive Date: 20200324
  Receipt Date: 20200324
  Transmission Date: 20200409
  Serious: Yes (Death, Other)
  Sender: FDA-Public Use
  Company Number: MX-AMGEN-MEXSP2020047247

PATIENT

DRUGS (1)
  1. NEUPOGEN [Suspect]
     Active Substance: FILGRASTIM
     Indication: HAEMATOPOIETIC STEM CELL MOBILISATION
     Dosage: 300 MICROGRAM, QD (FOR THREE DAYS)
     Route: 058

REACTIONS (29)
  - Neurological symptom [Unknown]
  - Insomnia [Unknown]
  - Pneumonia [Fatal]
  - Malaise [Unknown]
  - Back pain [Unknown]
  - H1N1 influenza [Fatal]
  - Aspiration [Fatal]
  - Seizure [Unknown]
  - Nasal disorder [Unknown]
  - Hypotension [Unknown]
  - Upper respiratory tract infection [Unknown]
  - Central nervous system infection [Unknown]
  - Urinary retention [Unknown]
  - Anxiety [Unknown]
  - Incision site haemorrhage [Unknown]
  - Vomiting [Unknown]
  - Sepsis [Fatal]
  - Pain of skin [Unknown]
  - Cognitive disorder [Unknown]
  - Hypertension [Unknown]
  - Respiratory failure [Fatal]
  - Pneumothorax [Unknown]
  - Abdominal pain [Unknown]
  - Arthralgia [Unknown]
  - Nausea [Unknown]
  - Death [Fatal]
  - Palpitations [Unknown]
  - Administration site haematoma [Unknown]
  - Headache [Unknown]
